FAERS Safety Report 9244423 (Version 3)
Quarter: 2015Q1

REPORT INFORMATION
  Report Type: Spontaneous
  Country: JP (occurrence: JP)
  Receive Date: 20130422
  Receipt Date: 20150319
  Transmission Date: 20150721
  Serious: Yes (Death, Hospitalization)
  Sender: FDA-Public Use
  Company Number: JP-JNJFOC-20130410077

PATIENT
  Age: 66 Year
  Sex: Male

DRUGS (10)
  1. NEORAL [Concomitant]
     Active Substance: CYCLOSPORINE
     Indication: PROPHYLAXIS
     Route: 048
     Dates: start: 20121108, end: 201303
  2. METHOTREXATE [Concomitant]
     Active Substance: METHOTREXATE
     Route: 048
     Dates: end: 2011
  3. REMICADE [Suspect]
     Active Substance: INFLIXIMAB
     Indication: PUSTULAR PSORIASIS
     Route: 042
     Dates: start: 20111220
  4. CDDP [Suspect]
     Active Substance: CISPLATIN
     Indication: RECTAL CANCER
     Route: 065
     Dates: start: 20130403
  5. XYZAL [Concomitant]
     Active Substance: LEVOCETIRIZINE DIHYDROCHLORIDE
     Indication: PROPHYLAXIS
     Route: 048
     Dates: start: 20120202
  6. CPT-11 [Suspect]
     Active Substance: IRINOTECAN
     Indication: RECTAL CANCER
     Route: 065
     Dates: start: 20130403
  7. NEORAL [Concomitant]
     Active Substance: CYCLOSPORINE
     Indication: PROPHYLAXIS
     Route: 048
     Dates: start: 2005, end: 2008
  8. REMICADE [Suspect]
     Active Substance: INFLIXIMAB
     Indication: PUSTULAR PSORIASIS
     Dosage: 6TH DOSE
     Route: 042
     Dates: start: 20120719
  9. TIGASON [Concomitant]
     Active Substance: ETRETINATE
     Indication: PROPHYLAXIS
     Route: 048
     Dates: start: 20120202
  10. DOVONEX [Concomitant]
     Active Substance: CALCIPOTRIENE
     Indication: PROPHYLAXIS
     Route: 048
     Dates: start: 20120202

REACTIONS (3)
  - Pneumonia [Unknown]
  - Rectal cancer [Fatal]
  - Metastases to liver [Unknown]

NARRATIVE: CASE EVENT DATE: 20130228
